FAERS Safety Report 15879527 (Version 1)
Quarter: 2019Q1

REPORT INFORMATION
  Report Type: Spontaneous
  Country: CH (occurrence: CH)
  Receive Date: 20190128
  Receipt Date: 20190128
  Transmission Date: 20190417
  Serious: Yes (Hospitalization, Other)
  Sender: FDA-Public Use
  Company Number: CH-TEVA-2019-CH-1004199

PATIENT
  Sex: Male

DRUGS (10)
  1. ISOTRETINOIN. [Suspect]
     Active Substance: ISOTRETINOIN
     Indication: ROSACEA
     Dosage: SCHEDULED FOR 4 WEEKS
     Dates: start: 20181221
  2. INEGY [Concomitant]
     Active Substance: EZETIMIBE\SIMVASTATIN
  3. JENTADUETO [Concomitant]
     Active Substance: LINAGLIPTIN\METFORMIN HYDROCHLORIDE
  4. FLUDEX-SR [Concomitant]
     Active Substance: INDAPAMIDE
  5. VALSARTAN. [Concomitant]
     Active Substance: VALSARTAN
  6. PARACETAMOL [Concomitant]
     Active Substance: ACETAMINOPHEN
  7. CLOPIDOGREL [Concomitant]
     Active Substance: CLOPIDOGREL BISULFATE
  8. NEBIVOLOL. [Concomitant]
     Active Substance: NEBIVOLOL
  9. ZANIDIP [Concomitant]
     Active Substance: LERCANIDIPINE HYDROCHLORIDE
  10. JARDIANCE [Concomitant]
     Active Substance: EMPAGLIFLOZIN

REACTIONS (2)
  - Hypertensive crisis [Unknown]
  - Torticollis [Unknown]
